FAERS Safety Report 9397225 (Version 2)
Quarter: 2013Q3

REPORT INFORMATION
  Report Type: Spontaneous
  Country: US (occurrence: US)
  Receive Date: 20130712
  Receipt Date: 20130725
  Transmission Date: 20140515
  Serious: Yes (Hospitalization, Other)
  Sender: FDA-Public Use
  Company Number: US-JNJFOC-20130701848

PATIENT
  Age: 57 Year
  Sex: Female
  Weight: 137.89 kg

DRUGS (3)
  1. XARELTO [Suspect]
     Indication: CEREBROVASCULAR ACCIDENT PROPHYLAXIS
     Dosage: FIRST DOSE OF RIVAROXABAN IN MAY-2013 OR JUN-2013.
     Route: 048
  2. XARELTO [Suspect]
     Indication: ATRIAL FIBRILLATION
     Dosage: FIRST DOSE OF RIVAROXABAN IN MAY-2013 OR JUN-2013.
     Route: 048
  3. INSULIN [Concomitant]
     Route: 065

REACTIONS (1)
  - Cerebral haemorrhage [Recovering/Resolving]
